FAERS Safety Report 9891101 (Version 4)
Quarter: 2016Q1

REPORT INFORMATION
  Report Type: Other
  Country: US (occurrence: US)
  Receive Date: 20140212
  Receipt Date: 20160301
  Transmission Date: 20160526
  Serious: Yes (Other)
  Sender: FDA-Public Use
  Company Number: US-ACORDA-ACO_38991_2013

PATIENT
  Age: 49 Year
  Sex: Female
  Weight: 70.3 kg

DRUGS (17)
  1. AMPYRA [Suspect]
     Active Substance: DALFAMPRIDINE
     Indication: GAIT DISTURBANCE
     Dosage: 10 MG, Q 12 HRS
     Route: 048
     Dates: start: 201109
  2. MIRAPEX [Concomitant]
     Active Substance: PRAMIPEXOLE DIHYDROCHLORIDE
     Indication: PRODUCT USED FOR UNKNOWN INDICATION
     Dosage: 0.25 MG, QD AND QHS
     Route: 048
  3. MAGNESIUM [Concomitant]
     Active Substance: MAGNESIUM
     Indication: PRODUCT USED FOR UNKNOWN INDICATION
     Dosage: 30 MG, UNK
     Route: 065
  4. ASPIRIN BUFFERED [Concomitant]
     Active Substance: ASPIRIN
     Indication: PRODUCT USED FOR UNKNOWN INDICATION
     Dosage: 325 MG, QD
     Route: 048
  5. TECFIDERA [Suspect]
     Active Substance: DIMETHYL FUMARATE
     Indication: MULTIPLE SCLEROSIS
     Dosage: 240 MG, BID
     Route: 048
     Dates: start: 20130926, end: 20131118
  6. AMANTADINE [Concomitant]
     Active Substance: AMANTADINE
     Indication: PRODUCT USED FOR UNKNOWN INDICATION
     Dosage: 100 MG, QAM
     Route: 048
  7. IRON [Concomitant]
     Active Substance: IRON
     Indication: PRODUCT USED FOR UNKNOWN INDICATION
     Dosage: 325 MG, BID
     Route: 048
  8. BETASERON [Suspect]
     Active Substance: INTERFERON BETA-1B
     Indication: MULTIPLE SCLEROSIS
     Dosage: 0.25 MG (1 ML), QOD
     Route: 058
     Dates: start: 2011, end: 201511
  9. ZANTAC [Concomitant]
     Active Substance: RANITIDINE HYDROCHLORIDE
     Indication: PRODUCT USED FOR UNKNOWN INDICATION
     Dosage: UNK
  10. OXYBUTYNIN CHLORIDE. [Concomitant]
     Active Substance: OXYBUTYNIN CHLORIDE
     Indication: PRODUCT USED FOR UNKNOWN INDICATION
     Dosage: 5 MG, QD
     Route: 048
  11. ZOLOFT [Concomitant]
     Active Substance: SERTRALINE HYDROCHLORIDE
     Indication: PRODUCT USED FOR UNKNOWN INDICATION
     Dosage: 100 MG, QD
     Route: 048
  12. BACLOFEN. [Concomitant]
     Active Substance: BACLOFEN
     Indication: PRODUCT USED FOR UNKNOWN INDICATION
     Dosage: 10 MG, BID
     Route: 048
  13. CALCIUM +D [Concomitant]
     Active Substance: CALCIUM\VITAMIN D
     Indication: PRODUCT USED FOR UNKNOWN INDICATION
     Dosage: 1000/600 MG, BID
     Route: 048
  14. IBUPROFEN. [Concomitant]
     Active Substance: IBUPROFEN
     Indication: PRODUCT USED FOR UNKNOWN INDICATION
     Dosage: 200 MG, PRN
     Route: 048
  15. LYRICA [Concomitant]
     Active Substance: PREGABALIN
     Indication: PRODUCT USED FOR UNKNOWN INDICATION
     Dosage: UNK
     Dates: start: 20151117
  16. TECFIDERA [Suspect]
     Active Substance: DIMETHYL FUMARATE
     Dosage: 240 MG, QD
     Route: 048
  17. VITAMIN C [Concomitant]
     Active Substance: ASCORBIC ACID
     Indication: PRODUCT USED FOR UNKNOWN INDICATION
     Dosage: 500 MG, BID
     Route: 048

REACTIONS (13)
  - Nausea [Unknown]
  - Coordination abnormal [Unknown]
  - Stress [Recovered/Resolved]
  - Visual impairment [Not Recovered/Not Resolved]
  - Middle insomnia [Unknown]
  - Diarrhoea [Unknown]
  - Central nervous system lesion [Unknown]
  - Condition aggravated [Unknown]
  - Vision blurred [Not Recovered/Not Resolved]
  - Fall [Recovering/Resolving]
  - Altered visual depth perception [Recovering/Resolving]
  - Vomiting [Recovering/Resolving]
  - Depression [Recovered/Resolved]

NARRATIVE: CASE EVENT DATE: 20120921
